FAERS Safety Report 23566086 (Version 3)
Quarter: 2024Q2

REPORT INFORMATION
  Report Type: Spontaneous
  Country: FR (occurrence: FR)
  Receive Date: 20240226
  Receipt Date: 20240528
  Transmission Date: 20240716
  Serious: Yes (Death, Hospitalization)
  Sender: FDA-Public Use
  Company Number: FR-ROCHE-3475783

PATIENT
  Age: 71 Year
  Sex: Female
  Weight: 66 kg

DRUGS (6)
  1. CYCLOPHOSPHAMIDE [Suspect]
     Active Substance: CYCLOPHOSPHAMIDE
     Indication: Diffuse large B-cell lymphoma
     Dosage: ON 04/DEC/2023, MOST RECENT DOSE PRIOR TO AE/SAE WAS TAKEN.
     Route: 042
     Dates: start: 20231204
  2. DOXORUBICIN [Suspect]
     Active Substance: DOXORUBICIN
     Indication: Diffuse large B-cell lymphoma
     Dosage: ON 04/DEC/2023, MOST RECENT DOSE PRIOR TO AE/SAE WAS TAKEN.
     Route: 042
     Dates: start: 20231204
  3. METHYLPREDNISOLONE [Suspect]
     Active Substance: METHYLPREDNISOLONE
     Indication: Diffuse large B-cell lymphoma
     Dosage: ON 04/DEC/2023, MOST RECENT DOSE (80) PRIOR TO AE/SAE WAS TAKEN.
     Route: 042
     Dates: start: 20231204
  4. PREDNISONE [Suspect]
     Active Substance: PREDNISONE
     Indication: Diffuse large B-cell lymphoma
     Dosage: 80 MG
     Route: 065
     Dates: start: 20231205
  5. RITUXIMAB [Suspect]
     Active Substance: RITUXIMAB
     Indication: Diffuse large B-cell lymphoma
     Dosage: ON 04/DEC/2023,  MOST RECENT DOSE PRIOR TO AE/SAE WAS TAKEN.
     Route: 042
     Dates: start: 20231204
  6. VINCRISTINE [Suspect]
     Active Substance: VINCRISTINE
     Indication: Diffuse large B-cell lymphoma
     Dosage: ON 04/DEC/2023, MOST RECENT DOSE PRIOR TO AE/SAE WAS TAKEN .
     Route: 042
     Dates: start: 20231204

REACTIONS (2)
  - Sepsis [Fatal]
  - Syncope [Recovering/Resolving]

NARRATIVE: CASE EVENT DATE: 20231213
